FAERS Safety Report 11118216 (Version 4)
Quarter: 2015Q4

REPORT INFORMATION
  Report Type: Spontaneous
  Country: IL (occurrence: IL)
  Receive Date: 20150518
  Receipt Date: 20151012
  Transmission Date: 20160304
  Serious: Yes (Other)
  Sender: FDA-Public Use
  Company Number: IL-JNJFOC-20150509063

PATIENT
  Age: 55 Year
  Sex: Female

DRUGS (2)
  1. SIMPONI [Suspect]
     Active Substance: GOLIMUMAB
     Indication: RHEUMATOID ARTHRITIS
     Route: 058
     Dates: start: 20140126
  2. ELTROXIN [Concomitant]
     Active Substance: LEVOTHYROXINE
     Route: 065

REACTIONS (4)
  - Thyroid cancer [Recovered/Resolved]
  - Pruritus [Not Recovered/Not Resolved]
  - Injection site bruising [Recovered/Resolved]
  - Administration site haemorrhage [Unknown]

NARRATIVE: CASE EVENT DATE: 201508
